FAERS Safety Report 5762044-7 (Version None)
Quarter: 2008Q2

REPORT INFORMATION
  Report Type: 
  Country: None (occurrence: None)
  Receive Date: 20080603
  Receipt Date: 20080428
  Transmission Date: 20081010
  Serious: Yes (Hospitalization)
  Sender: FDA-Public Use
  Company Number: 920#8#2008-00006

PATIENT
  Age: 45 Year
  Sex: Female

DRUGS (4)
  1. NIFEDIPINE [Suspect]
     Indication: DRUG USE FOR UNKNOWN INDICATION
  2. ATENOLOL [Suspect]
     Indication: DRUG USE FOR UNKNOWN INDICATION
  3. BENZODIAZEPINES (BDZ) [Concomitant]
  4. COUMADIN [Concomitant]

REACTIONS (15)
  - ATRIOVENTRICULAR BLOCK FIRST DEGREE [None]
  - CELL DEATH [None]
  - COMA [None]
  - CONTINUOUS HAEMODIAFILTRATION [None]
  - DRUG TOXICITY [None]
  - ILEUS PARALYTIC [None]
  - METABOLIC ACIDOSIS [None]
  - MULTI-ORGAN FAILURE [None]
  - MULTIPLE DRUG OVERDOSE [None]
  - MUSCULAR WEAKNESS [None]
  - RENAL FAILURE [None]
  - RESPIRATORY ACIDOSIS [None]
  - RHABDOMYOLYSIS [None]
  - WEANING FAILURE [None]
  - WHITE BLOOD CELL COUNT INCREASED [None]
